FAERS Safety Report 5528426-3 (Version None)
Quarter: 2007Q4

REPORT INFORMATION
  Report Type: 
  Country: None (occurrence: None)
  Receive Date: 20071128
  Receipt Date: 20071116
  Transmission Date: 20080405
  Serious: Yes (Hospitalization)
  Sender: FDA-Public Use
  Company Number: ES-GENENTECH-251800

PATIENT
  Sex: Female
  Weight: 56 kg

DRUGS (10)
  1. RITUXIMAB [Suspect]
     Indication: CHRONIC LYMPHOCYTIC LEUKAEMIA
     Dosage: 500 MG/M2, Q4W
     Route: 042
     Dates: start: 20070123
  2. MITOXANTRONE [Suspect]
     Indication: CHRONIC LYMPHOCYTIC LEUKAEMIA
     Dosage: 5 MG/M2, Q4W
     Route: 042
     Dates: start: 20070128
  3. MITOXANTRONE [Suspect]
     Dosage: 7.5 MG, UNK
     Dates: start: 20070411
  4. FLUDARABINE PHOSPHATE [Suspect]
     Indication: CHRONIC LYMPHOCYTIC LEUKAEMIA
     Dosage: 25 MG/M2, QDX3D/28DC
     Route: 042
     Dates: start: 20070123
  5. FLUDARABINE PHOSPHATE [Suspect]
     Dosage: 7.5 MG, UNK
     Route: 042
     Dates: start: 20070411
  6. CYCLOPHOSPHAMIDE [Suspect]
     Indication: CHRONIC LYMPHOCYTIC LEUKAEMIA
     Dosage: 200 MG/M2, QDX3D/28DC
     Route: 042
     Dates: start: 20070123
  7. CYCLOPHOSPHAMIDE [Suspect]
     Dosage: 256 MG, UNK
     Dates: start: 20070411
  8. PAROXETINE [Concomitant]
     Indication: DRUG USE FOR UNKNOWN INDICATION
  9. IDALPREM [Concomitant]
     Indication: DRUG USE FOR UNKNOWN INDICATION
  10. METFORMIN HCL [Concomitant]
     Indication: DRUG USE FOR UNKNOWN INDICATION
     Dates: start: 20000615

REACTIONS (1)
  - FEBRILE NEUTROPENIA [None]
